FAERS Safety Report 8458266-7 (Version None)
Quarter: 2012Q2

REPORT INFORMATION
  Report Type: 
  Country: None (occurrence: None)
  Receive Date: 20120323
  Receipt Date: 20111021
  Transmission Date: 20120825
  Serious: Yes (Other)
  Sender: FDA-Public Use
  Company Number: 163-21880-11102730

PATIENT
  Age: 78 Year
  Sex: Female
  Weight: 59.8748 kg

DRUGS (3)
  1. REVLIMID [Suspect]
     Indication: MULTIPLE MYELOMA
     Dosage: 25 1 IN 1 D, PO;15 1 IN 1 D, PO;10 MG, 1 IN 1 D, PO
     Route: 048
     Dates: start: 20100501
  2. REVLIMID [Suspect]
     Indication: MULTIPLE MYELOMA
     Dosage: 25 1 IN 1 D, PO;15 1 IN 1 D, PO;10 MG, 1 IN 1 D, PO
     Route: 048
     Dates: start: 20100401
  3. REVLIMID [Suspect]
     Indication: MULTIPLE MYELOMA
     Dosage: 25 1 IN 1 D, PO;15 1 IN 1 D, PO;10 MG, 1 IN 1 D, PO
     Route: 048
     Dates: start: 20110401

REACTIONS (1)
  - PROTEIN TOTAL INCREASED [None]
